FAERS Safety Report 4635512-9 (Version None)
Quarter: 2005Q2

REPORT INFORMATION
  Report Type: 
  Country: None (occurrence: None)
  Receive Date: 20050413
  Receipt Date: 20050401
  Transmission Date: 20051028
  Serious: Yes (Disabling)
  Sender: FDA-Public Use
  Company Number: 2005055459

PATIENT
  Age: 31 Year
  Sex: Male
  Weight: 82 kg

DRUGS (5)
  1. GABAPENTIN [Suspect]
     Indication: NEUROPATHIC PAIN
     Dosage: (300 MG), ORAL
     Route: 048
  2. FENTANYL [Concomitant]
  3. AMITRIPTYLINE HCL [Concomitant]
  4. TRAMADOL HCL [Concomitant]
  5. CELECOXIB (CELECOXIB) [Concomitant]

REACTIONS (8)
  - ABASIA [None]
  - ASTHENIA [None]
  - COORDINATION ABNORMAL [None]
  - DIPLOPIA [None]
  - DYSARTHRIA [None]
  - HEADACHE [None]
  - NYSTAGMUS [None]
  - SENSATION OF HEAVINESS [None]
